FAERS Safety Report 22153034 (Version 1)
Quarter: 2023Q1

REPORT INFORMATION
  Report Type: Report from Study
  Country: CA (occurrence: CA)
  Receive Date: 20230329
  Receipt Date: 20230329
  Transmission Date: 20230417
  Serious: Yes (Other)
  Sender: FDA-Public Use
  Company Number: CA-JNJFOC-20230202950

PATIENT
  Age: 72 Year
  Sex: Female

DRUGS (1)
  1. SIMPONI [Suspect]
     Active Substance: GOLIMUMAB
     Indication: Rheumatoid arthritis
     Route: 058
     Dates: start: 20161215

REACTIONS (5)
  - Pneumonia [Not Recovered/Not Resolved]
  - Rib fracture [Unknown]
  - Fall [Unknown]
  - Malaise [Recovering/Resolving]
  - Headache [Recovering/Resolving]

NARRATIVE: CASE EVENT DATE: 20230301
